FAERS Safety Report 21367691 (Version 1)
Quarter: 2022Q3

REPORT INFORMATION
  Report Type: Spontaneous
  Country: DK (occurrence: DK)
  Receive Date: 20220923
  Receipt Date: 20220923
  Transmission Date: 20221026
  Serious: Yes (Hospitalization, Disabling)
  Sender: FDA-Public Use
  Company Number: None

PATIENT

DRUGS (2)
  1. ZOLADEX [Suspect]
     Active Substance: GOSERELIN ACETATE
     Indication: Infertility
     Dosage: DOSAGE: UNKNOWN INTERVAL, STRENGTH: 10.8 MG10.8MG UNKNOWN
     Route: 065
     Dates: start: 20190605, end: 201908
  2. ZOLADEX [Suspect]
     Active Substance: GOSERELIN ACETATE
     Indication: Infertility
     Dosage: UNK
     Route: 065

REACTIONS (3)
  - Coronary artery dissection [Unknown]
  - Chest pain [Unknown]
  - Hypertension [Not Recovered/Not Resolved]

NARRATIVE: CASE EVENT DATE: 20190827
